FAERS Safety Report 7665326-7 (Version None)
Quarter: 2011Q3

REPORT INFORMATION
  Report Type: 
  Country: None (occurrence: None)
  Receive Date: 20110806
  Receipt Date: 20110519
  Transmission Date: 20111222
  Serious: No
  Sender: FDA-Public Use
  Company Number: US-ABBOTT-11P-163-0727440-00

PATIENT
  Sex: Female
  Weight: 73.094 kg

DRUGS (2)
  1. NIASPAN [Suspect]
     Indication: BLOOD CHOLESTEROL INCREASED
     Route: 048
     Dates: start: 20110516, end: 20110516
  2. THYROID REPLACMENT THERAPY [Concomitant]
     Indication: THYROIDECTOMY
     Dates: start: 20101101

REACTIONS (5)
  - PRURITUS [None]
  - PARAESTHESIA [None]
  - VOMITING [None]
  - ABDOMINAL DISCOMFORT [None]
  - FEELING HOT [None]
